FAERS Safety Report 6241572-4 (Version None)
Quarter: 2009Q2

REPORT INFORMATION
  Report Type: 
  Country: None (occurrence: None)
  Receive Date: 20090623
  Receipt Date: 20040610
  Transmission Date: 20091009
  Serious: Yes (Hospitalization)
  Sender: FDA-Public Use
  Company Number: ES-ROCHE-378932

PATIENT
  Sex: Male

DRUGS (35)
  1. DACLIZUMAB [Suspect]
     Route: 042
     Dates: start: 20040201
  2. DACLIZUMAB [Suspect]
     Dosage: WEEK-2 VISIT
     Route: 042
     Dates: start: 20040216
  3. DACLIZUMAB [Suspect]
     Dosage: FOR A TOTAL OF 4 DOSES AS PER PROTOCOL.
     Route: 042
     Dates: start: 20040301, end: 20040329
  4. MYCOPHENOLATE MOFETIL [Suspect]
     Dosage: DRUG: MYCOPHENOLE
     Route: 048
     Dates: start: 20040201, end: 20040201
  5. MYCOPHENOLATE MOFETIL [Suspect]
     Route: 048
     Dates: start: 20040202
  6. MYCOPHENOLATE MOFETIL [Suspect]
     Route: 048
     Dates: start: 20040219
  7. MYCOPHENOLATE MOFETIL [Suspect]
     Route: 048
     Dates: start: 20040329
  8. MYCOPHENOLATE MOFETIL [Suspect]
     Route: 048
     Dates: start: 20040706
  9. MYCOPHENOLATE MOFETIL [Suspect]
     Route: 048
     Dates: start: 20060405
  10. CYCLOSPORINE [Suspect]
     Route: 048
     Dates: start: 20050704
  11. CYCLOSPORINE [Suspect]
     Dosage: FORM: SOLUTION
     Route: 048
     Dates: start: 20040201, end: 20040201
  12. CYCLOSPORINE [Suspect]
     Dosage: DRUG: CYCLOSPORINE
     Route: 048
     Dates: start: 20040202, end: 20040906
  13. CYCLOSPORINE [Suspect]
     Dosage: FORM: TABLET
     Route: 048
     Dates: start: 20040907
  14. CYCLOSPORINE [Suspect]
     Route: 048
     Dates: start: 20051021
  15. CYCLOSPORINE [Suspect]
     Route: 048
     Dates: start: 20051128
  16. CYCLOSPORINE [Suspect]
     Route: 048
     Dates: start: 20060624
  17. METHYLPREDNISOLONE [Suspect]
     Dosage: ROUTE: IV
     Route: 050
     Dates: start: 20040201, end: 20040201
  18. METHYLPREDNISOLONE [Suspect]
     Dosage: FORM: VIAL; ROUTE: PO
     Route: 050
     Dates: start: 20040202, end: 20040203
  19. METHYLPREDNISOLONE [Suspect]
     Route: 050
     Dates: end: 20040303
  20. PREDNISONE [Suspect]
     Route: 048
     Dates: start: 20040203
  21. PREDNISONE [Suspect]
     Route: 048
     Dates: start: 20040404
  22. PREDNISONE [Suspect]
     Route: 048
     Dates: start: 20070221
  23. ACYCLOVIR [Concomitant]
     Route: 048
     Dates: start: 20040211, end: 20040423
  24. ASPIRIN [Concomitant]
     Route: 048
     Dates: start: 20040210
  25. SULFAMETHOXAZOLE AND TRIMETHOPRIM [Concomitant]
     Dates: start: 20040210, end: 20040601
  26. AMLODIPINE [Concomitant]
     Route: 048
     Dates: start: 20040208
  27. AMLODIPINE [Concomitant]
     Route: 048
     Dates: start: 20040716, end: 20040907
  28. CEFOXITIN [Concomitant]
     Dosage: DRUG: CEPHOXITIN; FORM: VIAL
     Route: 048
     Dates: start: 20040201
  29. CIPROFLOXACIN [Concomitant]
     Route: 048
     Dates: start: 20040220, end: 20040303
  30. GANCICLOVIR [Concomitant]
     Dosage: FORM: VIAL
     Route: 042
     Dates: start: 20040202, end: 20040202
  31. GANCICLOVIR [Concomitant]
     Route: 042
     Dates: start: 20040203, end: 20040211
  32. LOSARTAN POTASSIUM [Concomitant]
     Route: 048
     Dates: start: 20040228
  33. NYSTATIN [Concomitant]
     Route: 048
     Dates: start: 20040202, end: 20040211
  34. RAMIPRIL [Concomitant]
     Route: 048
     Dates: start: 20040228
  35. RAMIPRIL [Concomitant]
     Route: 048
     Dates: start: 20040907

REACTIONS (3)
  - ACINETOBACTER INFECTION [None]
  - URINARY TRACT INFECTION [None]
  - URINOMA [None]
